FAERS Safety Report 12783317 (Version 1)
Quarter: 2016Q3

REPORT INFORMATION
  Report Type: Report from Study
  Country: RO (occurrence: RO)
  Receive Date: 20160927
  Receipt Date: 20160927
  Transmission Date: 20161109
  Serious: Yes (Disabling, Other)
  Sender: FDA-Public Use
  Company Number: RO-ASTELLAS-2016US032758

PATIENT
  Sex: Male

DRUGS (1)
  1. ERLOTINIB [Suspect]
     Active Substance: ERLOTINIB
     Indication: LUNG CANCER METASTATIC
     Route: 048
     Dates: start: 20160727

REACTIONS (11)
  - Nausea [Recovered/Resolved]
  - Skin exfoliation [Not Recovered/Not Resolved]
  - Pruritus [Not Recovered/Not Resolved]
  - Drug ineffective [Unknown]
  - Paresis [Not Recovered/Not Resolved]
  - Vomiting [Recovered/Resolved]
  - Prostatic adenoma [Not Recovered/Not Resolved]
  - Constipation [Not Recovered/Not Resolved]
  - Skin lesion [Not Recovered/Not Resolved]
  - Headache [Recovered/Resolved]
  - Malignant neoplasm progression [Not Recovered/Not Resolved]
